FAERS Safety Report 9462447 (Version 1)
Quarter: 2013Q3

REPORT INFORMATION
  Report Type: Spontaneous
  Country: US (occurrence: US)
  Receive Date: 20130816
  Receipt Date: 20130816
  Transmission Date: 20140515
  Serious: Yes (Disabling)
  Sender: FDA-Public Use
  Company Number: US-009507513-0212USA01375

PATIENT
  Sex: Male

DRUGS (5)
  1. ZOCOR [Suspect]
     Indication: BLOOD CHOLESTEROL INCREASED
     Dosage: 20 MG, QD
     Route: 048
     Dates: start: 1999, end: 2003
  2. ZOCOR [Suspect]
     Dosage: 10 MG, QD
     Route: 048
     Dates: start: 2000, end: 2000
  3. THERAPY UNSPECIFIED [Concomitant]
     Indication: HYPERTENSION
  4. MK-9359 [Concomitant]
  5. NIACIN [Concomitant]

REACTIONS (10)
  - Pain [Unknown]
  - Myopathy [Not Recovered/Not Resolved]
  - Neck pain [Unknown]
  - Pain in extremity [Unknown]
  - Muscle spasms [Not Recovered/Not Resolved]
  - Asthenia [Not Recovered/Not Resolved]
  - Fatigue [Unknown]
  - Chest discomfort [Unknown]
  - Heart rate irregular [Not Recovered/Not Resolved]
  - Drug administration error [Unknown]
